FAERS Safety Report 24299805 (Version 1)
Quarter: 2024Q3

REPORT INFORMATION
  Report Type: Spontaneous
  Country: JP (occurrence: JP)
  Receive Date: 20240909
  Receipt Date: 20240909
  Transmission Date: 20241016
  Serious: Yes (Other)
  Sender: DAIICHI
  Company Number: JP-DSJP-DSJ-2024-143779

PATIENT
  Sex: Male

DRUGS (1)
  1. EDOXABAN TOSYLATE [Suspect]
     Active Substance: EDOXABAN TOSYLATE
     Indication: Atrial fibrillation
     Dosage: 60MG
     Route: 048

REACTIONS (2)
  - Renal injury [Unknown]
  - Haematuria [Not Recovered/Not Resolved]
